FAERS Safety Report 5588956-5 (Version None)
Quarter: 2007Q4

REPORT INFORMATION
  Report Type: 
  Country: None (occurrence: None)
  Receive Date: 20071211
  Receipt Date: 20071107
  Transmission Date: 20080405
  Serious: No
  Sender: FDA-Public Use
  Company Number: 002#2#2007-00314

PATIENT
  Sex: Female

DRUGS (1)
  1. NEUPRO [Suspect]
     Indication: DRUG USE FOR UNKNOWN INDICATION
     Dosage: 6MG/24H,1 IN 1 D,TRANSDERMAL
     Route: 062
     Dates: start: 20070801

REACTIONS (2)
  - CONDITION AGGRAVATED [None]
  - SKIN REACTION [None]
